FAERS Safety Report 18282011 (Version 1)
Quarter: 2020Q3

REPORT INFORMATION
  Report Type: Spontaneous
  Country: US (occurrence: US)
  Receive Date: 20200918
  Receipt Date: 20200918
  Transmission Date: 20201103
  Serious: No
  Sender: FDA-Public Use
  Company Number: US-SA-2020SA245776

PATIENT

DRUGS (1)
  1. SELSUN BLUE MOISTURIZING [Suspect]
     Active Substance: SELENIUM SULFIDE

REACTIONS (6)
  - Application site burn [Not Recovered/Not Resolved]
  - Application site bruise [Unknown]
  - Application site scab [Unknown]
  - Application site rash [Unknown]
  - Exposure during pregnancy [Unknown]
  - Application site vesicles [Unknown]
